FAERS Safety Report 8425168-1 (Version None)
Quarter: 2012Q2

REPORT INFORMATION
  Report Type: 
  Country: None (occurrence: None)
  Receive Date: 20120531
  Receipt Date: 20120524
  Transmission Date: 20120825
  Serious: Yes (Life-Threatening, Hospitalization)
  Sender: FDA-Public Use
  Company Number: HRA-CDB20120158

PATIENT
  Age: 31 Year
  Sex: Female
  Weight: 60 kg

DRUGS (1)
  1. ELLAONE 30 MG TABLETTE (ELLAONE) (ULIPRISTAL ACETATE0 [Suspect]
     Indication: POST COITAL CONTRACEPTION
     Dates: start: 20110601

REACTIONS (3)
  - COMA [None]
  - THROMBOSIS [None]
  - CEREBROVASCULAR ACCIDENT [None]
